FAERS Safety Report 13898071 (Version 2)
Quarter: 2017Q4

REPORT INFORMATION
  Report Type: Spontaneous
  Country: US (occurrence: US)
  Receive Date: 20170823
  Receipt Date: 20171127
  Transmission Date: 20180320
  Serious: Yes (Death, Other)
  Sender: FDA-Public Use
  Company Number: US-BAYER-2017-156025

PATIENT
  Age: 51 Year
  Sex: Female

DRUGS (17)
  1. AVELOX [Suspect]
     Active Substance: MOXIFLOXACIN HYDROCHLORIDE
     Indication: INFECTION
     Dosage: 400 MG, QD
     Dates: start: 20080703, end: 20080708
  2. LORAZEPAM. [Concomitant]
     Active Substance: LORAZEPAM
     Indication: ANXIETY
     Dosage: UNK
     Dates: start: 2007, end: 2014
  3. LEUPRORELIN [Concomitant]
     Active Substance: LEUPROLIDE ACETATE
     Indication: HORMONE THERAPY
     Dosage: UNK
     Dates: start: 2014
  4. FEMARA [Concomitant]
     Active Substance: LETROZOLE
     Indication: HORMONE THERAPY
     Dosage: UNK
     Dates: start: 2014
  5. ALTI-AMOXI CLAV [Concomitant]
     Indication: INFECTION
     Dosage: UNK
     Dates: start: 2014
  6. CIPROFLOXACIN. [Suspect]
     Active Substance: CIPROFLOXACIN
     Indication: INFECTION
     Dosage: 500 MG, BID
     Route: 048
     Dates: start: 20090325, end: 20090404
  7. ASPIRIN. [Concomitant]
     Active Substance: ASPIRIN
     Indication: CARDIAC DISORDER
     Dosage: UNK
     Dates: start: 2014
  8. CARTIA XT [Concomitant]
     Active Substance: DILTIAZEM HYDROCHLORIDE
     Indication: HYPERTENSION
     Dosage: UNK
     Dates: start: 2008, end: 2014
  9. AVELOX [Suspect]
     Active Substance: MOXIFLOXACIN HYDROCHLORIDE
     Indication: INFECTION
     Dosage: 400 MG, QD
     Dates: start: 20060901, end: 20060908
  10. AVELOX [Suspect]
     Active Substance: MOXIFLOXACIN HYDROCHLORIDE
     Indication: INFECTION
     Dosage: 400 MG, QD
     Dates: start: 20110210, end: 20110220
  11. EFFEXOR [Concomitant]
     Active Substance: VENLAFAXINE HYDROCHLORIDE
     Indication: DEPRESSION
     Dosage: UNK
     Dates: start: 2009, end: 2014
  12. CARISOPRODOL. [Concomitant]
     Active Substance: CARISOPRODOL
     Indication: PAIN
     Dosage: UNK
     Dates: start: 2014
  13. PREDNISONE. [Concomitant]
     Active Substance: PREDNISONE
     Dosage: UNK
     Dates: start: 2014
  14. CIPROFLOXACIN. [Suspect]
     Active Substance: CIPROFLOXACIN
     Indication: INFECTION
     Dosage: 500 MG, BID
     Route: 048
     Dates: start: 20090503, end: 20090513
  15. GABAPENTIN. [Concomitant]
     Active Substance: GABAPENTIN
     Indication: NEURALGIA
     Dosage: UNK
     Dates: start: 2012, end: 2014
  16. CIPROFLOXACIN. [Suspect]
     Active Substance: CIPROFLOXACIN
     Indication: INFECTION
     Dosage: 500 MG, BID
     Route: 048
     Dates: start: 20090523, end: 20090602
  17. BACLOFEN. [Concomitant]
     Active Substance: BACLOFEN
     Indication: PAIN
     Dosage: UNK
     Dates: start: 2014

REACTIONS (2)
  - Peripheral motor neuropathy [None]
  - Neuropathy peripheral [Not Recovered/Not Resolved]

NARRATIVE: CASE EVENT DATE: 20110623
